FAERS Safety Report 5472521-4 (Version None)
Quarter: 2007Q4

REPORT INFORMATION
  Report Type: 
  Country: None (occurrence: None)
  Receive Date: 20071001
  Receipt Date: 20070918
  Transmission Date: 20080405
  Serious: Yes (Disabling)
  Sender: FDA-Public Use
  Company Number: GB-AMGEN-UK244713

PATIENT
  Sex: Female

DRUGS (5)
  1. NEULASTA [Suspect]
     Indication: CHEMOTHERAPY
     Route: 058
     Dates: start: 20070530
  2. CYCLOPHOSPHAMIDE [Concomitant]
     Dates: start: 20070530, end: 20070829
  3. DOXORUBICIN HYDROCHLORIDE [Concomitant]
     Dates: start: 20070530, end: 20070829
  4. VINCRISTINE [Concomitant]
     Dates: start: 20070530, end: 20070829
  5. PREDNISOLONE [Concomitant]
     Dates: start: 20070530, end: 20070829

REACTIONS (3)
  - ACCIDENTAL OVERDOSE [None]
  - DACTYLITIS [None]
  - PALMAR-PLANTAR ERYTHRODYSAESTHESIA SYNDROME [None]
